FAERS Safety Report 16538354 (Version 2)
Quarter: 2019Q3

REPORT INFORMATION
  Report Type: Spontaneous
  Country: US (occurrence: US)
  Receive Date: 20190708
  Receipt Date: 20190711
  Transmission Date: 20191004
  Serious: Yes (Other)
  Sender: FDA-Public Use
  Company Number: US-DRREDDYS-USA/USA/19/0111701

PATIENT
  Age: 24 Year
  Sex: Male
  Weight: 60.75 kg

DRUGS (2)
  1. IRON PILLS [Concomitant]
     Active Substance: IRON
     Indication: HAEMATOCRIT DECREASED
     Route: 048
  2. ZENATANE [Suspect]
     Active Substance: ISOTRETINOIN
     Indication: ACNE
     Route: 048
     Dates: start: 20160301, end: 20160801

REACTIONS (4)
  - Colitis ulcerative [Unknown]
  - Impaired work ability [Unknown]
  - Hepatic encephalopathy [Unknown]
  - Malaise [Unknown]

NARRATIVE: CASE EVENT DATE: 20160401
